FAERS Safety Report 8906898 (Version 1)
Quarter: 2012Q4

REPORT INFORMATION
  Report Type: 
  Country: IN (occurrence: IN)
  Receive Date: 20121113
  Receipt Date: 20121113
  Transmission Date: 20130627
  Serious: Yes (Other)
  Sender: FDA-Public Use
  Company Number: IN-WATSON-2012-18950

PATIENT
  Age: 38 Year
  Sex: Male

DRUGS (3)
  1. ALPRAZOLAM (UNKNOWN) [Suspect]
     Indication: ANXIETY
     Dosage: UNK
     Route: 065
  2. TRAZODONE [Suspect]
     Indication: DEPRESSION
     Dosage: 150 mg, daily
     Route: 065
  3. TRAZODONE [Suspect]
     Dosage: 300 mg, daily
     Route: 065

REACTIONS (2)
  - Libido increased [Recovered/Resolved]
  - Nocturnal emission [Recovered/Resolved]
